FAERS Safety Report 13250610 (Version 2)
Quarter: 2017Q1

REPORT INFORMATION
  Report Type: Spontaneous
  Country: US (occurrence: US)
  Receive Date: 20170219
  Receipt Date: 20170331
  Transmission Date: 20170428
  Serious: Yes (Hospitalization)
  Sender: FDA-Public Use
  Company Number: US-PERNIX THERAPEUTICS-2017PT000030

PATIENT
  Age: 2 Year
  Sex: Female

DRUGS (1)
  1. CEDAX [Suspect]
     Active Substance: CEFTIBUTEN DIHYDRATE
     Indication: EAR INFECTION
     Dosage: UNK
     Route: 048
     Dates: start: 20161225, end: 20161227

REACTIONS (3)
  - Mastoiditis [Recovered/Resolved]
  - Drug ineffective [Unknown]
  - Brain abscess [Unknown]

NARRATIVE: CASE EVENT DATE: 20161225
